FAERS Safety Report 4935135-8 (Version None)
Quarter: 2006Q1

REPORT INFORMATION
  Report Type: 
  Country: None (occurrence: None)
  Receive Date: 20060306
  Receipt Date: 20060306
  Transmission Date: 20060701
  Serious: Yes (Other)
  Sender: FDA-Public Use
  Company Number: None

PATIENT
  Age: 45 Year
  Sex: Female
  Weight: 56.6996 kg

DRUGS (1)
  1. MIRAPEX [Suspect]
     Indication: DEPRESSION
     Dosage: .75  3 TIMES DAILY
     Dates: start: 20010409, end: 20050720

REACTIONS (1)
  - GAMBLING [None]
